FAERS Safety Report 5915837-7 (Version None)
Quarter: 2008Q4

REPORT INFORMATION
  Report Type: 
  Country: None (occurrence: None)
  Receive Date: 20081010
  Receipt Date: 20080930
  Transmission Date: 20090506
  Serious: Yes (Death, Other)
  Sender: FDA-Public Use
  Company Number: PE-PFIZER INC-2008081000

PATIENT
  Sex: Male

DRUGS (6)
  1. LYRICA [Suspect]
     Indication: NEURALGIA
     Dosage: DAILY DOSE:75MG
     Dates: start: 20070911
  2. LYRICA [Suspect]
     Indication: POST HERPETIC NEURALGIA
  3. ALENDRONATE SODIUM [Concomitant]
  4. CALCIUM [Concomitant]
  5. ACETYLSALICYLIC ACID SRT [Concomitant]
  6. CAPTOPRIL [Concomitant]

REACTIONS (1)
  - DEATH [None]
